FAERS Safety Report 4319206-5 (Version None)
Quarter: 2004Q1

REPORT INFORMATION
  Report Type: 
  Country: None (occurrence: None)
  Receive Date: 20040316
  Receipt Date: 20040302
  Transmission Date: 20041129
  Serious: Yes (Other)
  Sender: FDA-Public Use
  Company Number: JP_040302725

PATIENT
  Age: 75 Year
  Sex: Female
  Weight: 51 kg

DRUGS (9)
  1. VANCOMYCIN HYDROCHLORIDE [Suspect]
     Indication: STAPHYLOCOCCAL INFECTION
     Dosage: 2000 MG DAY
     Route: 042
     Dates: start: 20030902, end: 20030911
  2. WARFARIN SODIUM [Concomitant]
  3. ISOSORBIDE MONONITRATE [Concomitant]
  4. GASTER OD (FAMOTIDINE) [Concomitant]
  5. SIGMART (NICORANDIL) [Concomitant]
  6. ALPRAZOLAM [Concomitant]
  7. NORVASC [Concomitant]
  8. BUFFERIN [Concomitant]
  9. TORSEMIDE [Concomitant]

REACTIONS (2)
  - RASH [None]
  - WHITE BLOOD CELL COUNT DECREASED [None]
